FAERS Safety Report 6835448-9 (Version None)
Quarter: 2010Q3

REPORT INFORMATION
  Report Type: 
  Country: None (occurrence: None)
  Receive Date: 20100712
  Receipt Date: 20100712
  Transmission Date: 20110219
  Serious: No
  Sender: FDA-Public Use
  Company Number: None

PATIENT
  Sex: Female
  Weight: 61.2356 kg

DRUGS (1)
  1. FEXOFENADINE [Suspect]
     Indication: RHINITIS ALLERGIC
     Dosage: 180MG ONCE DAILY ORAL
     Route: 048
     Dates: start: 20080826, end: 20100710

REACTIONS (2)
  - DRUG INEFFECTIVE [None]
  - PRODUCT SUBSTITUTION ISSUE [None]
